FAERS Safety Report 5892723-2 (Version None)
Quarter: 2008Q3

REPORT INFORMATION
  Report Type: 
  Country: None (occurrence: None)
  Receive Date: 20080923
  Receipt Date: 20080919
  Transmission Date: 20090109
  Serious: Yes (Life-Threatening, Other)
  Sender: FDA-Public Use
  Company Number: PHHY2008CA20941

PATIENT
  Sex: Male

DRUGS (2)
  1. CLOZARIL [Suspect]
     Indication: SCHIZOPHRENIA
     Dosage: 100 MG QAM, 400 MG QHS
     Route: 048
     Dates: start: 20080704, end: 20080910
  2. ATIVAN [Concomitant]
     Dosage: 1-2 MG PO / IM AND 4-6 HRS PRN
     Dates: start: 20020629, end: 20080910

REACTIONS (4)
  - CONVULSION [None]
  - LETHARGY [None]
  - OVERDOSE [None]
  - PUPILLARY DISORDER [None]
